FAERS Safety Report 19316555 (Version 1)
Quarter: 2021Q2

REPORT INFORMATION
  Report Type: Spontaneous
  Country: IT (occurrence: IT)
  Receive Date: 20210527
  Receipt Date: 20210527
  Transmission Date: 20210717
  Serious: Yes (Other)
  Sender: FDA-Public Use
  Company Number: IT-AMGEN-ITASP2021060622

PATIENT

DRUGS (2)
  1. CARFILZOMIB [Suspect]
     Active Substance: CARFILZOMIB
     Indication: PLASMA CELL MYELOMA
     Dosage: 1413.4 MILLIGRAM (1140.4?2150.2)
     Route: 065
  2. DEXAMETHASONE. [Suspect]
     Active Substance: DEXAMETHASONE
     Indication: PLASMA CELL MYELOMA
     Dosage: UNK
     Route: 065

REACTIONS (14)
  - Atrial fibrillation [Unknown]
  - Acute myocardial infarction [Unknown]
  - Hypotension [Unknown]
  - Chest pain [Unknown]
  - Left ventricular dysfunction [Unknown]
  - Supraventricular extrasystoles [Unknown]
  - Cardiac failure [Unknown]
  - Ventricular extrasystoles [Unknown]
  - Dyspnoea [Unknown]
  - Hypertension [Unknown]
  - Cardiac arrest [Unknown]
  - Syncope [Unknown]
  - Ventricular tachycardia [Unknown]
  - Acute coronary syndrome [Unknown]
